FAERS Safety Report 7964812-X (Version None)
Quarter: 2011Q4

REPORT INFORMATION
  Report Type: 
  Country: None (occurrence: None)
  Receive Date: 20111208
  Receipt Date: 20111129
  Transmission Date: 20120403
  Serious: Yes (Other)
  Sender: FDA-Public Use
  Company Number: PHHY2011BR105354

PATIENT

DRUGS (1)
  1. EXFORGE [Suspect]
     Dosage: UNK

REACTIONS (4)
  - ABASIA [None]
  - PAIN [None]
  - MUSCULOSKELETAL PAIN [None]
  - C-REACTIVE PROTEIN ABNORMAL [None]
